FAERS Safety Report 5513417-9 (Version None)
Quarter: 2007Q4

REPORT INFORMATION
  Report Type: 
  Country: None (occurrence: None)
  Receive Date: 20071112
  Receipt Date: 20071031
  Transmission Date: 20080405
  Serious: Yes (Other)
  Sender: FDA-Public Use
  Company Number: FR-PFIZER INC-2007084464

PATIENT
  Sex: Female
  Weight: 52.5 kg

DRUGS (6)
  1. VFEND [Suspect]
     Indication: ASPERGILLOMA
  2. BACTRIM DS [Interacting]
     Dosage: TEXT:1 DF; 1DF-FREQ:FREQUENCY: DAILY
     Route: 048
  3. ROCEPHIN [Concomitant]
     Indication: LUNG DISORDER
     Dates: start: 20070101, end: 20070101
  4. GENTALLINE [Concomitant]
     Indication: LUNG DISORDER
     Dates: start: 20070101, end: 20070101
  5. VANCOMYCIN HYDROCHLORIDE [Concomitant]
     Indication: LUNG DISORDER
     Dates: start: 20070101, end: 20070101
  6. AMBISOME [Concomitant]
     Dates: start: 20070401, end: 20070901

REACTIONS (12)
  - ABDOMINAL PAIN [None]
  - ANOREXIA [None]
  - BACK PAIN [None]
  - BLOOD PHOSPHORUS DECREASED [None]
  - CELL DEATH [None]
  - CHOLESTASIS [None]
  - DIARRHOEA [None]
  - HYPOCALCAEMIA [None]
  - HYPOMAGNESAEMIA [None]
  - NAUSEA [None]
  - RENAL DISORDER [None]
  - VOMITING [None]
